FAERS Safety Report 6127444-4 (Version None)
Quarter: 2009Q1

REPORT INFORMATION
  Report Type: 
  Country: None (occurrence: None)
  Receive Date: 20090319
  Receipt Date: 20090305
  Transmission Date: 20090719
  Serious: Yes (Hospitalization)
  Sender: FDA-Public Use
  Company Number: 02100-JPN-06-0127

PATIENT
  Age: 63 Year
  Sex: Male

DRUGS (1)
  1. PLAVIX [Suspect]
     Indication: CEREBROVASCULAR ACCIDENT
     Dosage: 75 MG, DAILY DOSE ORAL
     Route: 048
     Dates: start: 20060110, end: 20060803

REACTIONS (5)
  - AGITATION [None]
  - ANXIETY [None]
  - BLISTER [None]
  - DEPRESSION [None]
  - INSOMNIA [None]
